FAERS Safety Report 4922512-4 (Version None)
Quarter: 2006Q1

REPORT INFORMATION
  Report Type: 
  Country: None (occurrence: None)
  Receive Date: 20060224
  Receipt Date: 20060206
  Transmission Date: 20060701
  Serious: Yes (Other)
  Sender: FDA-Public Use
  Company Number: JP-ROCHE-435791

PATIENT
  Age: 10 Year
  Sex: Male
  Weight: 27 kg

DRUGS (3)
  1. TAMIFLU [Suspect]
     Route: 048
     Dates: start: 20060116, end: 20060117
  2. ASVERIN [Concomitant]
     Route: 048
     Dates: start: 20060116, end: 20060120
  3. MUCOSOLVAN [Concomitant]
     Route: 048
     Dates: start: 20060116, end: 20060120

REACTIONS (3)
  - ABNORMAL BEHAVIOUR [None]
  - CONFUSIONAL STATE [None]
  - PYREXIA [None]
